FAERS Safety Report 9720496 (Version 1)
Quarter: 2013Q4

REPORT INFORMATION
  Report Type: Report from Study
  Country: NL (occurrence: NL)
  Receive Date: 20131129
  Receipt Date: 20131129
  Transmission Date: 20140711
  Serious: Yes (Hospitalization)
  Sender: FDA-Public Use
  Company Number: NL-JNJFOC-20131113613

PATIENT
  Age: 76 Year
  Sex: Male

DRUGS (14)
  1. ABIRATERONE ACETATE [Suspect]
     Indication: PROSTATE CANCER
     Route: 048
     Dates: start: 20121017, end: 20130626
  2. PREDNISOLONE [Concomitant]
     Route: 065
  3. NITROFURANTOIN [Concomitant]
     Route: 065
  4. LISINOPRIL [Concomitant]
     Route: 065
  5. LANOXIN [Concomitant]
     Dosage: ^0,125^ UNITS NOT REPORTED
     Route: 065
  6. METFORMIN [Concomitant]
     Route: 065
  7. GLICLAZIDE [Concomitant]
     Route: 065
  8. ACENOCOUMAROL [Concomitant]
     Route: 065
  9. METOPROLOL SUCCINATE [Concomitant]
     Route: 065
  10. METOPROLOL SUCCINATE [Concomitant]
     Route: 065
  11. CITALOPRAM [Concomitant]
     Route: 065
  12. CRESTOR [Concomitant]
     Route: 065
  13. LANTUS [Concomitant]
     Dosage: ^27-16EH^
     Route: 065
  14. LUCRIN [Concomitant]
     Dosage: 11.25 UNITS NOT REPORTED
     Route: 065

REACTIONS (1)
  - Diabetic foot [Unknown]
